FAERS Safety Report 8990648 (Version 1)
Quarter: 2012Q4

REPORT INFORMATION
  Report Type: 
  Country: US (occurrence: US)
  Receive Date: 20121228
  Receipt Date: 20121228
  Transmission Date: 20130627
  Serious: Yes (Hospitalization, Other)
  Sender: FDA-Public Use
  Company Number: US-ORACLE-2012P1053967

PATIENT
  Age: 76 Year
  Sex: Male
  Weight: 72.58 kg

DRUGS (12)
  1. WARFARIN SODIUM [Suspect]
     Route: 048
     Dates: end: 20120808
  2. WARFARIN SODIUM [Suspect]
     Route: 048
  3. FORADIL [Concomitant]
  4. ALBUTEROL [Concomitant]
  5. HYDRALAZINE [Concomitant]
  6. DIGOXIN [Concomitant]
  7. MECARDIS HCT [Concomitant]
  8. HYDRALAZINE [Concomitant]
  9. MUCINEX [Concomitant]
  10. NEBULIZER TREATMENTS [Concomitant]
  11. OXYGEN [Concomitant]
  12. SINGULAIR [Concomitant]

REACTIONS (9)
  - International normalised ratio increased [Recovering/Resolving]
  - Haemoptysis [Not Recovered/Not Resolved]
  - International normalised ratio fluctuation [Recovering/Resolving]
  - Dyspnoea [Unknown]
  - Chronic obstructive pulmonary disease [Unknown]
  - Inguinal hernia [Not Recovered/Not Resolved]
  - Coagulation time prolonged [Recovering/Resolving]
  - Iatrogenic injury [None]
  - Overdose [None]
